FAERS Safety Report 24986055 (Version 1)
Quarter: 2025Q1

REPORT INFORMATION
  Report Type: Spontaneous
  Country: US (occurrence: None)
  Receive Date: 20250218
  Receipt Date: 20250218
  Transmission Date: 20250409
  Serious: Yes (unspecified)
  Sender: FDA-CTU
  Company Number: None

PATIENT
  Age: 46 Year
  Sex: Female

DRUGS (6)
  1. CEFTRIAXONE [Suspect]
     Active Substance: CEFTRIAXONE
     Indication: Urinary tract infection
     Route: 042
     Dates: start: 20250207
  2. EPINEPHRINE [Suspect]
     Active Substance: EPINEPHRINE
  3. KETOROLAC [Concomitant]
     Active Substance: KETOROLAC TROMETHAMINE
  4. MORPHINE [Concomitant]
     Active Substance: MORPHINE
  5. ONDANSETRON [Concomitant]
     Active Substance: ONDANSETRON
  6. NS 1000 ml [Concomitant]

REACTIONS (8)
  - Dyspnoea [None]
  - Throat tightness [None]
  - Infusion related reaction [None]
  - Hypersensitivity [None]
  - Cough [None]
  - Wheezing [None]
  - Stridor [None]
  - Anaphylactic reaction [None]

NARRATIVE: CASE EVENT DATE: 20250207
